FAERS Safety Report 5692927-8 (Version None)
Quarter: 2008Q2

REPORT INFORMATION
  Report Type: 
  Country: None (occurrence: None)
  Receive Date: 20080325
  Receipt Date: 20071207
  Transmission Date: 20081010
  Serious: Yes (Other)
  Sender: FDA-Public Use
  Company Number: 14007843

PATIENT
  Sex: Female
  Weight: 47.62 kg

DRUGS (3)
  1. EMSAM [Suspect]
     Indication: DEPRESSION
     Dosage: 6 MILLIGRAM,1/1 DAY
     Dates: start: 20071016, end: 20071119
  2. ATENOLOL [Concomitant]
  3. XANAX [Concomitant]

REACTIONS (2)
  - HYPOTENSION [None]
  - SYNCOPE [None]
